FAERS Safety Report 18114387 (Version 1)
Quarter: 2020Q3

REPORT INFORMATION
  Report Type: Report from Study
  Country: CN (occurrence: CN)
  Receive Date: 20200805
  Receipt Date: 20200805
  Transmission Date: 20201103
  Serious: Yes (Hospitalization, Other)
  Sender: FDA-Public Use
  Company Number: CN-VISTAPHARM, INC.-VER202008-001334

PATIENT
  Age: 35 Year
  Sex: Male

DRUGS (2)
  1. ACYCLOVIR. [Suspect]
     Active Substance: ACYCLOVIR
     Indication: INFECTION
     Dosage: UNKNOWN
  2. HYDROCODONE AND ACETAMINOPHEN [Suspect]
     Active Substance: ACETAMINOPHEN\HYDROCODONE
     Indication: HEADACHE
     Dosage: UNKNOWN

REACTIONS (1)
  - Reversible splenial lesion syndrome [Unknown]
